FAERS Safety Report 14598346 (Version 1)
Quarter: 2018Q1

REPORT INFORMATION
  Report Type: Spontaneous
  Country: US (occurrence: US)
  Receive Date: 20180303
  Receipt Date: 20180303
  Transmission Date: 20180509
  Serious: No
  Sender: FDA-Public Use
  Company Number: None

PATIENT
  Age: 85 Year
  Sex: Female
  Weight: 43.09 kg

DRUGS (1)
  1. ESTRADIOL, 0.01% % [Suspect]
     Active Substance: ESTRADIOL
     Indication: VULVOVAGINAL DISCOMFORT
     Route: 067
     Dates: start: 20180219, end: 20180223

REACTIONS (4)
  - Feeling cold [None]
  - Vulvovaginal burning sensation [None]
  - Vulvovaginal discomfort [None]
  - Vaginal disorder [None]

NARRATIVE: CASE EVENT DATE: 20180219
